FAERS Safety Report 7413671-2 (Version None)
Quarter: 2011Q2

REPORT INFORMATION
  Report Type: 
  Country: None (occurrence: None)
  Receive Date: 20110413
  Receipt Date: 20110408
  Transmission Date: 20111010
  Serious: Yes (Hospitalization, Other)
  Sender: FDA-Public Use
  Company Number: US-BAYER-201033255NA

PATIENT
  Age: 36 Year
  Sex: Female
  Weight: 83 kg

DRUGS (2)
  1. ZOLOFT [Concomitant]
     Indication: ANXIETY
     Route: 065
     Dates: start: 20040101
  2. YAZ [Suspect]
     Indication: CONTRACEPTION
     Dosage: UNK UNK, UNK
     Route: 048
     Dates: start: 20070701, end: 20080401

REACTIONS (11)
  - HYPERSENSITIVITY [None]
  - PANCREATITIS [None]
  - INJURY [None]
  - NERVOUSNESS [None]
  - VASCULAR RUPTURE [None]
  - PAIN [None]
  - CHOLECYSTITIS CHRONIC [None]
  - EMOTIONAL DISTRESS [None]
  - FEAR OF DEATH [None]
  - CHOLELITHIASIS [None]
  - DEPRESSION [None]
